FAERS Safety Report 20350211 (Version 1)
Quarter: 2022Q1

REPORT INFORMATION
  Report Type: Spontaneous
  Country: US (occurrence: US)
  Receive Date: 20220119
  Receipt Date: 20220119
  Transmission Date: 20220423
  Serious: Yes (Hospitalization, Other)
  Sender: FDA-Public Use
  Company Number: US-MLMSERVICE-20220106-3300732-1

PATIENT
  Age: 54 Year
  Sex: Female

DRUGS (1)
  1. ZOLPIDEM [Suspect]
     Active Substance: ZOLPIDEM TARTRATE
     Indication: Insomnia
     Dosage: PER NIGHT
     Route: 065

REACTIONS (5)
  - Self-medication [Recovered/Resolved]
  - Drug abuse [Unknown]
  - Incorrect dose administered [Unknown]
  - Drug dependence [Recovered/Resolved]
  - Drug withdrawal convulsions [Recovered/Resolved]
